FAERS Safety Report 5173182-4 (Version None)
Quarter: 2006Q4

REPORT INFORMATION
  Report Type: 
  Country: None (occurrence: None)
  Receive Date: 20061205
  Receipt Date: 20061007
  Transmission Date: 20070319
  Serious: Yes (Hospitalization)
  Sender: FDA-Public Use
  Company Number: 2006SP004016

PATIENT
  Age: 58 Year
  Sex: Female

DRUGS (1)
  1. PEGETRON (PEGINTERFERON ALFA-2B W/RIBAVIRIN) (PEGYLATED INTERFERON AL [Suspect]
     Indication: HEPATITIS C

REACTIONS (5)
  - CONFUSIONAL STATE [None]
  - HEPATIC FAILURE [None]
  - MENTAL IMPAIRMENT [None]
  - MOBILITY DECREASED [None]
  - PNEUMONIA [None]
